FAERS Safety Report 15757108 (Version 2)
Quarter: 2018Q4

REPORT INFORMATION
  Report Type: Spontaneous
  Country: FR (occurrence: FR)
  Receive Date: 20181224
  Receipt Date: 20181228
  Transmission Date: 20190205
  Serious: Yes (Life-Threatening)
  Sender: FDA-Public Use
  Company Number: FR-PFIZER INC-2018524182

PATIENT
  Age: 33 Year
  Sex: Female

DRUGS (6)
  1. HYDROCORTISONE SODIUM SUCCINATE [Suspect]
     Active Substance: HYDROCORTISONE SODIUM SUCCINATE
     Dosage: 100 MG, UNK
     Route: 065
  2. SUXAMETHONIUM [Suspect]
     Active Substance: SUCCINYLCHOLINE
     Indication: INDUCTION OF ANAESTHESIA
     Dosage: UNK
     Route: 065
  3. PANCURONIUM [Concomitant]
     Active Substance: PANCURONIUM
     Indication: INDUCTION OF ANAESTHESIA
     Dosage: UNK
     Route: 065
  4. PENTOBARBITAL. [Concomitant]
     Active Substance: PENTOBARBITAL
     Indication: INDUCTION OF ANAESTHESIA
     Dosage: UNK
     Route: 065
  5. FENTANYL. [Concomitant]
     Active Substance: FENTANYL
     Indication: INDUCTION OF ANAESTHESIA
     Dosage: UNK
     Route: 065
  6. OXYTOCIN. [Concomitant]
     Active Substance: OXYTOCIN
     Dosage: UNK
     Route: 065

REACTIONS (2)
  - Cardio-respiratory arrest [Unknown]
  - Shock [Unknown]
